FAERS Safety Report 23219643 (Version 8)
Quarter: 2025Q3

REPORT INFORMATION
  Report Type: Report from Study
  Country: US (occurrence: US)
  Receive Date: 20231122
  Receipt Date: 20250722
  Transmission Date: 20251021
  Serious: Yes (Other)
  Sender: AVADEL CNS PHARMACEUTICALS, LLC
  Company Number: US-AVADEL CNS PHARMACEUTICALS, LLC-2023AVA00127

PATIENT
  Age: 54 Year
  Sex: Female
  Weight: 136.05 kg

DRUGS (30)
  1. LUMRYZ [Suspect]
     Active Substance: SODIUM OXYBATE
     Indication: Narcolepsy
     Dosage: 9 G, ONCE NIGHTLY
     Route: 048
     Dates: start: 2023, end: 2023
  2. LUMRYZ [Suspect]
     Active Substance: SODIUM OXYBATE
     Indication: Cataplexy
     Dosage: 9 G, ONCE NIGHTLY
     Route: 048
     Dates: start: 2023
  3. LUMRYZ [Suspect]
     Active Substance: SODIUM OXYBATE
     Dosage: 9 G, ONCE NIGHTLY
     Route: 048
  4. LUMRYZ [Suspect]
     Active Substance: SODIUM OXYBATE
     Dosage: 9 G, ONCE NIGHTLY
     Route: 048
  5. UNSPECIFIED INGREDIENT [Suspect]
     Active Substance: UNSPECIFIED INGREDIENT
  6. UNSPECIFIED INGREDIENT [Suspect]
     Active Substance: UNSPECIFIED INGREDIENT
  7. UNSPECIFIED INGREDIENT [Suspect]
     Active Substance: UNSPECIFIED INGREDIENT
  8. HYDROCHLOROTHIAZIDE\OLMESARTAN MEDOXOMIL [Concomitant]
     Active Substance: HYDROCHLOROTHIAZIDE\OLMESARTAN MEDOXOMIL
     Dosage: 40/25 MG, 1X/DAY
  9. ARMODAFINIL [Concomitant]
     Active Substance: ARMODAFINIL
     Dosage: 75 MG, 1X/DAY
  10. HYDROCHLOROTHIAZIDE [Concomitant]
     Active Substance: HYDROCHLOROTHIAZIDE
     Dosage: 25 MG, 1X/DAY
  11. PROPRANOLOL HYDROCHLORIDE [Concomitant]
     Active Substance: PROPRANOLOL HYDROCHLORIDE
     Dosage: 60 MG, 1X/DAY
  12. ZINC [Concomitant]
     Active Substance: ZINC
  13. VITAMIN C [Concomitant]
     Active Substance: ASCORBIC ACID
  14. VITAMIN D NOS [Concomitant]
     Active Substance: CHOLECALCIFEROL\ERGOCALCIFEROL
  15. FLONASE [Concomitant]
     Active Substance: FLUTICASONE PROPIONATE
  16. PROAIR HFA [Concomitant]
     Active Substance: ALBUTEROL SULFATE
  17. ALBUTEROL SULFATE [Concomitant]
     Active Substance: ALBUTEROL SULFATE
  18. UNSPECIFIED BLOOD PRESSURE MEDICATION #1 [Concomitant]
  19. UNSPECIFIED BLOOD PRESSURE MEDICATION #2 [Concomitant]
  20. ADVIL [Concomitant]
     Active Substance: IBUPROFEN
  21. MAGNESIUM [Concomitant]
     Active Substance: MAGNESIUM
  22. ^A LOT^ OF UNSPECIFIED PRESCRIPTIONS [Concomitant]
  23. ADVAIR HFA [Concomitant]
     Active Substance: FLUTICASONE PROPIONATE\SALMETEROL XINAFOATE
  24. ATENOLOL [Concomitant]
     Active Substance: ATENOLOL
  25. ATORVASTATIN [Concomitant]
     Active Substance: ATORVASTATIN
  26. BACLOFEN [Concomitant]
     Active Substance: BACLOFEN
  27. HYDRALAZINE [Concomitant]
     Active Substance: HYDRALAZINE HYDROCHLORIDE
  28. POTASSIUM [Concomitant]
     Active Substance: POTASSIUM
  29. TIZANIDINE [Concomitant]
     Active Substance: TIZANIDINE
  30. TYLENOL [Concomitant]
     Active Substance: ACETAMINOPHEN

REACTIONS (34)
  - Uterine cancer [Not Recovered/Not Resolved]
  - Blood pressure decreased [Unknown]
  - Initial insomnia [Recovering/Resolving]
  - Middle insomnia [Not Recovered/Not Resolved]
  - Sedation [Not Recovered/Not Resolved]
  - COVID-19 [Recovering/Resolving]
  - Bronchitis [Not Recovered/Not Resolved]
  - Insomnia [Not Recovered/Not Resolved]
  - Productive cough [Not Recovered/Not Resolved]
  - Dyspnoea [Not Recovered/Not Resolved]
  - Chest discomfort [Not Recovered/Not Resolved]
  - Thinking abnormal [Not Recovered/Not Resolved]
  - Fatigue [Unknown]
  - Poor quality sleep [Recovering/Resolving]
  - Malaise [Not Recovered/Not Resolved]
  - Nasal congestion [Not Recovered/Not Resolved]
  - Nasopharyngitis [Not Recovered/Not Resolved]
  - Illness [Not Recovered/Not Resolved]
  - Sinus disorder [Not Recovered/Not Resolved]
  - Nasal discomfort [Not Recovered/Not Resolved]
  - Sinus congestion [Not Recovered/Not Resolved]
  - Paranasal sinus hypersecretion [Not Recovered/Not Resolved]
  - Respiratory symptom [Not Recovered/Not Resolved]
  - Staphylococcal infection [Unknown]
  - Cough [Unknown]
  - Pyrexia [Unknown]
  - Feeling drunk [Not Recovered/Not Resolved]
  - Hypersensitivity [Not Recovered/Not Resolved]
  - Disturbance in attention [Not Recovered/Not Resolved]
  - Somnolence [Not Recovered/Not Resolved]
  - Drug ineffective [Not Recovered/Not Resolved]
  - Drug interaction [Recovering/Resolving]
  - Product preparation issue [Not Recovered/Not Resolved]
  - Intentional dose omission [Unknown]

NARRATIVE: CASE EVENT DATE: 20230901
